FAERS Safety Report 12069446 (Version 9)
Quarter: 2017Q1

REPORT INFORMATION
  Report Type: Report from Study
  Country: CA (occurrence: CA)
  Receive Date: 20160211
  Receipt Date: 20170302
  Transmission Date: 20170428
  Serious: Yes (Other)
  Sender: FDA-Public Use
  Company Number: CA-ROCHE-1093776

PATIENT
  Age: 50 Year
  Sex: Female
  Weight: 65 kg

DRUGS (20)
  1. FLUCONAZOLE. [Concomitant]
     Active Substance: FLUCONAZOLE
  2. DIMENHYDRINATE. [Concomitant]
     Active Substance: DIMENHYDRINATE
  3. BORIC ACID [Concomitant]
     Active Substance: BORIC ACID
  4. RATIO-TECNAL C [Concomitant]
  5. POLYSPORIN CREAM [Concomitant]
  6. ATIVAN [Concomitant]
     Active Substance: LORAZEPAM
  7. FOSAMAX [Concomitant]
     Active Substance: ALENDRONATE SODIUM
  8. VALACYCLOVIR [Concomitant]
     Active Substance: VALACYCLOVIR HYDROCHLORIDE
  9. ACTEMRA [Suspect]
     Active Substance: TOCILIZUMAB
     Route: 042
     Dates: start: 20160316
  10. TRAZODONE [Concomitant]
     Active Substance: TRAZODONE HYDROCHLORIDE
  11. METHOTREXATE. [Concomitant]
     Active Substance: METHOTREXATE
  12. PREDNISONE. [Concomitant]
     Active Substance: PREDNISONE
  13. NEXIUM [Concomitant]
     Active Substance: ESOMEPRAZOLE MAGNESIUM
  14. ACTEMRA [Suspect]
     Active Substance: TOCILIZUMAB
     Indication: RHEUMATOID ARTHRITIS
     Route: 042
     Dates: start: 20100903
  15. TERAZOL (CANADA) [Concomitant]
  16. ANUGESIC [Concomitant]
  17. ALESSE 28 [Concomitant]
     Active Substance: ETHINYL ESTRADIOL\LEVONORGESTREL
  18. CLOBETASOL [Concomitant]
     Active Substance: CLOBETASOL
  19. LEUCOVORIN. [Concomitant]
     Active Substance: LEUCOVORIN
  20. NABUMETONE. [Concomitant]
     Active Substance: NABUMETONE

REACTIONS (17)
  - Infusion related reaction [Unknown]
  - Ear pain [Unknown]
  - Medication error [Unknown]
  - Infusion related reaction [Recovered/Resolved]
  - Ear infection [Not Recovered/Not Resolved]
  - Fatigue [Unknown]
  - Weight increased [Not Recovered/Not Resolved]
  - Osteomyelitis [Unknown]
  - Pain [Not Recovered/Not Resolved]
  - Hypersensitivity [Unknown]
  - Skin infection [Unknown]
  - Tympanic membrane perforation [Unknown]
  - Drug effect decreased [Unknown]
  - Anxiety [Unknown]
  - Malaise [Unknown]
  - Wound infection [Recovering/Resolving]
  - Heart rate decreased [Unknown]

NARRATIVE: CASE EVENT DATE: 20120709
